FAERS Safety Report 6423667-5 (Version None)
Quarter: 2009Q4

REPORT INFORMATION
  Report Type: 
  Country: None (occurrence: None)
  Receive Date: 20091102
  Receipt Date: 20091020
  Transmission Date: 20100525
  Serious: Yes (Other)
  Sender: FDA-Public Use
  Company Number: NL-MERCK-0910NLD00021

PATIENT
  Age: 58 Year
  Sex: Female
  Weight: 101 kg

DRUGS (3)
  1. HYZAAR [Suspect]
     Indication: HYPERTENSION
     Route: 048
     Dates: start: 20010901, end: 20090824
  2. COZAAR [Suspect]
     Indication: HYPERTENSION
     Route: 048
     Dates: start: 20010901, end: 20090824
  3. RABEPRAZOLE SODIUM [Concomitant]
     Route: 048
     Dates: start: 20061020

REACTIONS (1)
  - BONE PAIN [None]
